FAERS Safety Report 7451035-6 (Version None)
Quarter: 2011Q2

REPORT INFORMATION
  Report Type: 
  Country: None (occurrence: None)
  Receive Date: 20110422
  Receipt Date: 20110413
  Transmission Date: 20111010
  Serious: Yes (Other)
  Sender: FDA-Public Use
  Company Number: NSR_00221_2011

PATIENT
  Sex: Female
  Weight: 68.0396 kg

DRUGS (3)
  1. FLUOXETINE [Suspect]
     Indication: POST-TRAUMATIC STRESS DISORDER
     Dosage: 20 MG QD,
     Dates: start: 20110214, end: 20110228
  2. FLUOXETINE [Concomitant]
  3. CLONAZEPAM [Concomitant]

REACTIONS (13)
  - HYPERVIGILANCE [None]
  - CRYING [None]
  - SCREAMING [None]
  - DRUG EFFECT DECREASED [None]
  - MENTAL DISORDER [None]
  - AGITATION [None]
  - ANGER [None]
  - AGGRESSION [None]
  - DISEASE RECURRENCE [None]
  - SUICIDAL IDEATION [None]
  - POST-TRAUMATIC STRESS DISORDER [None]
  - PRODUCT QUALITY ISSUE [None]
  - INSOMNIA [None]
